FAERS Safety Report 25652110 (Version 1)
Quarter: 2025Q3

REPORT INFORMATION
  Report Type: Spontaneous
  Country: US (occurrence: US)
  Receive Date: 20250806
  Receipt Date: 20250806
  Transmission Date: 20251020
  Serious: Yes (Hospitalization, Other)
  Sender: BRISTOL-MYERS SQUIBB COMPANY
  Company Number: US-BRISTOL-MYERS SQUIBB COMPANY-2025-109197

PATIENT
  Age: 70 Year
  Sex: Female
  Weight: 59.2 kg

DRUGS (3)
  1. ELIQUIS [Suspect]
     Active Substance: APIXABAN
     Indication: Pulmonary embolism
  2. BINIMETINIB [Suspect]
     Active Substance: BINIMETINIB
     Indication: Ovarian cancer
     Dates: end: 20250128
  3. PALBOCICLIB [Suspect]
     Active Substance: PALBOCICLIB
     Indication: Ovarian cancer
     Dates: end: 20250128

REACTIONS (4)
  - Upper gastrointestinal haemorrhage [Recovered/Resolved]
  - Rectal haemorrhage [Not Recovered/Not Resolved]
  - Haemorrhoidal haemorrhage [Unknown]
  - Lower gastrointestinal haemorrhage [Recovered/Resolved]

NARRATIVE: CASE EVENT DATE: 20250103
